FAERS Safety Report 16872260 (Version 1)
Quarter: 2019Q4

REPORT INFORMATION
  Report Type: Spontaneous
  Country: GB (occurrence: GB)
  Receive Date: 20191001
  Receipt Date: 20191001
  Transmission Date: 20200122
  Serious: Yes (Life-Threatening)
  Sender: FDA-Public Use
  Company Number: GB-HORIZON-PRE-0438-2019

PATIENT
  Age: 50 Year
  Sex: Female
  Weight: 88.9 kg

DRUGS (9)
  1. TIOTROPIUM BROMIDE [Concomitant]
     Active Substance: TIOTROPIUM BROMIDE
  2. PREGABALIN. [Concomitant]
     Active Substance: PREGABALIN
  3. ACTAVIS GROUP PTC ESOMEPRAZOLE GASTRO-RESISTANT [Concomitant]
  4. ESCITALOPRAM [Concomitant]
     Active Substance: ESCITALOPRAM OXALATE
  5. MEBEVERINE [Concomitant]
     Active Substance: MEBEVERINE
  6. ESTRADIOL. [Concomitant]
     Active Substance: ESTRADIOL
  7. PROPANOLOL [Concomitant]
     Active Substance: PROPRANOLOL HYDROCHLORIDE
  8. PREDNISONE. [Suspect]
     Active Substance: PREDNISONE
     Indication: PRODUCT USED FOR UNKNOWN INDICATION
     Dosage: 30MG
     Dates: start: 20190831, end: 20190904
  9. FOLIC ACID. [Concomitant]
     Active Substance: FOLIC ACID

REACTIONS (4)
  - Feeling abnormal [Recovering/Resolving]
  - Indifference [Recovering/Resolving]
  - Depression [Recovering/Resolving]
  - Suicidal ideation [Recovering/Resolving]

NARRATIVE: CASE EVENT DATE: 20190903
